FAERS Safety Report 9366332 (Version 1)
Quarter: 2013Q2

REPORT INFORMATION
  Report Type: Spontaneous
  Country: US (occurrence: US)
  Receive Date: 20130625
  Receipt Date: 20130625
  Transmission Date: 20140414
  Serious: No
  Sender: FDA-Public Use
  Company Number: US-GLAXOSMITHKLINE-A0998823A

PATIENT
  Age: 85 Year
  Sex: Female

DRUGS (5)
  1. VERAMYST [Suspect]
     Indication: RHINITIS ALLERGIC
     Dosage: 1SPR PER DAY
     Route: 045
  2. LIPITOR [Concomitant]
  3. CITRACAL [Concomitant]
  4. VIT D [Concomitant]
  5. VITAMINS [Concomitant]

REACTIONS (6)
  - Rhinorrhoea [Not Recovered/Not Resolved]
  - Rhinorrhoea [Unknown]
  - Cough [Unknown]
  - Feeling abnormal [Unknown]
  - Drug ineffective [Unknown]
  - Rhinitis allergic [Unknown]
